FAERS Safety Report 7480865-X (Version None)
Quarter: 2011Q2

REPORT INFORMATION
  Report Type: 
  Country: None (occurrence: None)
  Receive Date: 20110516
  Receipt Date: 20110511
  Transmission Date: 20111010
  Serious: Yes (Life-Threatening, Hospitalization, Other)
  Sender: FDA-Public Use
  Company Number: PHHY2010AU54946

PATIENT
  Sex: Male

DRUGS (5)
  1. PAROXETINE HCL [Concomitant]
     Dosage: 20 MG MANE
  2. BIPERIDEN [Concomitant]
     Dosage: 4 MG NOCTE
  3. CLOZARIL [Suspect]
     Dosage: 400 MG, UNK
  4. VALPROATE SODIUM [Concomitant]
     Dosage: 20 MG MANE
  5. CLOZARIL [Suspect]
     Dosage: 350 MG, UNK
     Dates: start: 19940510

REACTIONS (21)
  - LUNG DISORDER [None]
  - SCHIZOPHRENIA [None]
  - HAEMOGLOBIN DECREASED [None]
  - C-REACTIVE PROTEIN INCREASED [None]
  - PCO2 INCREASED [None]
  - RESPIRATORY FAILURE [None]
  - CELLULITIS [None]
  - LYMPHOCYTE COUNT DECREASED [None]
  - MEAN CELL HAEMOGLOBIN DECREASED [None]
  - PO2 DECREASED [None]
  - RESPIRATORY DISORDER [None]
  - RESPIRATORY RATE INCREASED [None]
  - OEDEMA PERIPHERAL [None]
  - COLLAPSE OF LUNG [None]
  - DYSPNOEA [None]
  - BLOOD METHAEMOGLOBIN ABSENT [None]
  - FALL [None]
  - CHRONIC OBSTRUCTIVE PULMONARY DISEASE [None]
  - NEUTROPHIL COUNT INCREASED [None]
  - PNEUMONIA [None]
  - MONOCYTE COUNT INCREASED [None]
